FAERS Safety Report 7535199-1 (Version None)
Quarter: 2011Q2

REPORT INFORMATION
  Report Type: 
  Country: None (occurrence: None)
  Receive Date: 20110609
  Receipt Date: 20090403
  Transmission Date: 20111010
  Serious: Yes (Hospitalization, Other)
  Sender: FDA-Public Use
  Company Number: PHHY2009JP12911

PATIENT
  Sex: Male
  Weight: 62 kg

DRUGS (6)
  1. BASEN [Concomitant]
     Dosage: 0.9 MG, UNK
     Route: 048
     Dates: start: 20070131
  2. MICARDIS [Concomitant]
     Dosage: 80 MG, UNK
     Route: 048
  3. PRAVASTATIN SODIUM [Concomitant]
     Dosage: 10 MG, UNK
     Route: 048
     Dates: start: 20070110
  4. VALSARTAN [Suspect]
     Indication: HYPERTENSION
     Dosage: 80 MG, BID
     Route: 048
     Dates: start: 20080220
  5. ALLOPURINOL [Concomitant]
     Dosage: 200 MG, UNK
     Route: 048
     Dates: start: 20070110
  6. MICARDIS [Concomitant]
     Dosage: 40 MG, UNK
     Route: 048
     Dates: start: 20071003, end: 20080219

REACTIONS (2)
  - FALL [None]
  - SUBDURAL HAEMATOMA [None]
